FAERS Safety Report 14337641 (Version 35)
Quarter: 2020Q4

REPORT INFORMATION
  Report Type: Spontaneous
  Country: GR (occurrence: GR)
  Receive Date: 20171229
  Receipt Date: 20201009
  Transmission Date: 20210113
  Serious: Yes (Other)
  Sender: FDA-Public Use
  Company Number: GR-MYLANLABS-2017M1082797

PATIENT
  Age: 62 Year
  Sex: Female

DRUGS (125)
  1. TRASTUZUMAB. [Suspect]
     Active Substance: TRASTUZUMAB
     Dosage: 1 DF, QD COMBINATION WITH VINORELBINE
     Dates: start: 2009
  2. TRASTUZUMAB. [Suspect]
     Active Substance: TRASTUZUMAB
     Dosage: 1 DOSAGE FORM, CYCLE(COMBINATION WITH EXEMESTANE AND EVEROLIMUS)
     Dates: start: 2009
  3. TRASTUZUMAB. [Suspect]
     Active Substance: TRASTUZUMAB
     Dosage: 1 DOSAGE FORM, CYCLE
     Dates: start: 2009
  4. TRASTUZUMAB. [Suspect]
     Active Substance: TRASTUZUMAB
     Dosage: 1 DOSAGE FORM, CYCLE(COMBINATION WITH TAMOXIFEN)
     Route: 065
     Dates: start: 2009
  5. TRASTUZUMAB. [Suspect]
     Active Substance: TRASTUZUMAB
     Dosage: UNK, CYCLE(COMBINATION WITH VINORELBINE)
     Dates: start: 2009
  6. TRASTUZUMAB. [Suspect]
     Active Substance: TRASTUZUMAB
     Dosage: UNK, CYCLE(COMBINATION WITH TAMOXIFEN)
     Route: 065
     Dates: start: 2009
  7. TRASTUZUMAB. [Suspect]
     Active Substance: TRASTUZUMAB
     Dosage: UNK, CYCLE(COMBINATION WITH LIPOSOMAL DOXORUBICIN HCL)
     Dates: start: 2009
  8. TRASTUZUMAB. [Suspect]
     Active Substance: TRASTUZUMAB
     Dosage: 1 DOSAGE FORM, CYCLE, (CYCLIC COMBINATION WITH LIPOSOMAL DOXORUBICIN HCL)
     Route: 065
  9. TRASTUZUMAB. [Suspect]
     Active Substance: TRASTUZUMAB
     Dosage: 1 DOSAGE FORM, CYCLE, COMBINATION WITH GEMCITABINE AND CARBOPLATIN
     Route: 065
  10. TRASTUZUMAB. [Suspect]
     Active Substance: TRASTUZUMAB
     Dosage: 1 DOSAGE FORM, CYCLE,COMBINATION WITH ERIBULIN
     Route: 065
  11. TRASTUZUMAB. [Suspect]
     Active Substance: TRASTUZUMAB
     Dosage: 1 DOSAGE FORM, CYCLE, COMBINATION WITH EXEMESTANE AND EVEROLIMUS
     Route: 065
  12. CAPECITABINE. [Suspect]
     Active Substance: CAPECITABINE
     Dosage: UNK, CYCLE(COMBINATION WITH LAPATINIB)
     Dates: start: 2009
  13. CAPECITABINE. [Suspect]
     Active Substance: CAPECITABINE
     Dosage: UNK UNK, CYCLE( COMBINATION WITH TRASTUZUMAB)
     Dates: start: 2009
  14. TAMOXIFEN [Suspect]
     Active Substance: TAMOXIFEN
     Dosage: UNK, CYCLE(COMBINATION WITH TRASTUZUMAB)
     Dates: start: 2009
  15. CARBOPLATIN. [Suspect]
     Active Substance: CARBOPLATIN
     Dosage: UNK UNK, CYCLE(COMBINATION WITH TRASTUZUMAB AND GEMCITABINE)
     Route: 065
     Dates: start: 2009
  16. EXEMESTANE. [Suspect]
     Active Substance: EXEMESTANE
     Indication: BREAST CANCER METASTATIC
     Dosage: 1 DOSAGE FORM, QD
     Route: 065
     Dates: start: 2009
  17. ERIBULIN [Suspect]
     Active Substance: ERIBULIN
     Indication: RECURRENT CANCER
     Dosage: 1 DOSAGE FORM, CYCLE, COMBINATION WITH TRASTUZUMAB
     Route: 065
     Dates: start: 2009
  18. ENDOXAN                            /00021102/ [Suspect]
     Active Substance: CYCLOPHOSPHAMIDE
     Dosage: UNK, CYCLE
     Dates: start: 2006
  19. LAPATINIB                          /01756704/ [Suspect]
     Active Substance: LAPATINIB DITOSYLATE
     Dosage: UNK
  20. TRASTUZUMAB. [Suspect]
     Active Substance: TRASTUZUMAB
     Indication: RECURRENT CANCER
     Dosage: 1 DF, QD COMBINATION WITH TAMOXIFEN
     Route: 065
     Dates: start: 2009
  21. TRASTUZUMAB. [Suspect]
     Active Substance: TRASTUZUMAB
     Dosage: 1 DF, QD COMBINATION WITH GEMCITABINE AND CARBOPLATIN
     Dates: start: 2009
  22. TRASTUZUMAB. [Suspect]
     Active Substance: TRASTUZUMAB
     Dosage: UNK, CYCLE(COMBINATION WITH GEMCITABINE AND CARBOPLATIN)
     Dates: start: 2009
  23. TRASTUZUMAB. [Suspect]
     Active Substance: TRASTUZUMAB
     Dosage: 1 DOSAGE FORM, CYCLE, COMBINATION WITH CAPECITABINE
     Route: 065
  24. FULVESTRANT. [Suspect]
     Active Substance: FULVESTRANT
     Dosage: UNK
  25. CAPECITABINE. [Suspect]
     Active Substance: CAPECITABINE
     Dosage: UNK
  26. TAMOXIFEN [Suspect]
     Active Substance: TAMOXIFEN
     Dosage: 1 DF, QD COMBINATION WITH TRASTUZUMAB
     Dates: start: 2009
  27. DOCETAXEL. [Suspect]
     Active Substance: DOCETAXEL
     Indication: BREAST CANCER METASTATIC
     Dosage: 1 DF, CYCLE
     Route: 065
     Dates: start: 2009
  28. DOCETAXEL. [Suspect]
     Active Substance: DOCETAXEL
     Dosage: UNK UNK, CYCLE
     Route: 065
     Dates: start: 2009
  29. ERIBULIN [Suspect]
     Active Substance: ERIBULIN
     Indication: BREAST CANCER METASTATIC
     Dosage: 1 DOSAGE FORM, QD (1 DF, QD, COMBINATION WITH TRASTUZUMAB
     Route: 042
     Dates: start: 2009
  30. EVEROLIMUS. [Suspect]
     Active Substance: EVEROLIMUS
     Dosage: 1 DOSAGE FORM, CYCLE,COMBINATION WITH TRASTZUMAB AND EXEMESTANE
     Route: 065
  31. VINORELBINE [Suspect]
     Active Substance: VINORELBINE TARTRATE
     Indication: BREAST CANCER METASTATIC
     Dosage: 1 DOSAGE FORM, CYCLE, COMBINATION WITH TRASTUZUMAB
     Route: 065
     Dates: start: 2009
  32. LAPATINIB                          /01756704/ [Suspect]
     Active Substance: LAPATINIB DITOSYLATE
     Dosage: UNK
  33. TRASTUZUMAB. [Suspect]
     Active Substance: TRASTUZUMAB
     Dosage: UNK, CYCLE
     Dates: start: 2009
  34. TRASTUZUMAB. [Suspect]
     Active Substance: TRASTUZUMAB
     Dosage: UNK
  35. FULVESTRANT. [Suspect]
     Active Substance: FULVESTRANT
     Indication: BREAST CANCER METASTATIC
     Dosage: 1 DOSAGE FORM, QD
     Dates: start: 2009
  36. EPIRUBICIN [Suspect]
     Active Substance: EPIRUBICIN
     Dosage: UNK, CYCLE
     Dates: start: 2006
  37. CAPECITABINE. [Suspect]
     Active Substance: CAPECITABINE
     Indication: RECURRENT CANCER
     Dosage: 1 DOSAGE FORM, CYCLE,REGIMEN 1 COMBINATION WITH LAPATINIB
     Route: 065
     Dates: start: 2009
  38. CAPECITABINE. [Suspect]
     Active Substance: CAPECITABINE
     Dosage: 1 DF, QD
     Route: 065
     Dates: start: 2009
  39. PACLITAXEL. [Suspect]
     Active Substance: PACLITAXEL
     Indication: BREAST CANCER METASTATIC
     Dosage: 1 DOSAGE FORM, CYCLE
     Route: 065
     Dates: start: 2006
  40. PACLITAXEL. [Suspect]
     Active Substance: PACLITAXEL
     Dosage: 1 DOSAGE FORM, QD
     Dates: start: 2006
  41. CARBOPLATIN. [Suspect]
     Active Substance: CARBOPLATIN
     Indication: RECURRENT CANCER
     Dosage: 1 DF, QD
     Route: 065
  42. GEMCITABINE. [Suspect]
     Active Substance: GEMCITABINE
     Indication: RECURRENT CANCER
     Dosage: 1 DF, QD COMBINATION WITH TRASTUZUMAB AND CARBOPLATIN
     Route: 065
  43. GEMCITABINE. [Suspect]
     Active Substance: GEMCITABINE
     Dosage: 1 DOSAGE FORM, CYCLE,COMBINATION WITH TRASTUZUMAB AND CARBOPLATIN
     Route: 065
  44. ERIBULIN [Suspect]
     Active Substance: ERIBULIN
     Dosage: UNK
     Route: 065
  45. EVEROLIMUS. [Suspect]
     Active Substance: EVEROLIMUS
     Indication: PROPHYLAXIS AGAINST TRANSPLANT REJECTION
     Dosage: 1 DF, QD COMBINATION WITH TRASTZUMAB AND EXEMESTANE
     Dates: start: 2009
  46. VINORELBINE [Suspect]
     Active Substance: VINORELBINE TARTRATE
     Dosage: UNK, CYCLE(COMBINATION WITH TRASTUZUMAB)
     Dates: start: 2009
  47. LAPATINIB                          /01756704/ [Suspect]
     Active Substance: LAPATINIB DITOSYLATE
     Indication: RECURRENT CANCER
     Dosage: 1 DOSAGE FORM, QD
     Dates: start: 2009
  48. FLUOROURACIL                       /00098802/ [Suspect]
     Active Substance: FLUOROURACIL
     Indication: BREAST CANCER METASTATIC
     Dosage: 1 DOSAGE FORM, QD
     Dates: start: 2006
  49. TRASTUZUMAB. [Suspect]
     Active Substance: TRASTUZUMAB
     Indication: BREAST CANCER METASTATIC
     Dosage: 1, DF, QD COMBINATION WITH FULVESTRANT
     Route: 065
     Dates: start: 2009
  50. FULVESTRANT. [Suspect]
     Active Substance: FULVESTRANT
     Indication: METASTATIC MALIGNANT MELANOMA
     Dosage: 1 DOSAGE FORM, CYCLE
     Route: 065
     Dates: start: 2009
  51. FULVESTRANT. [Suspect]
     Active Substance: FULVESTRANT
     Dosage: UNK UNK, CYCLE(COMBINATION WITH TRASTUZUMAB)
     Dates: start: 2009
  52. FULVESTRANT. [Suspect]
     Active Substance: FULVESTRANT
     Dosage: UNK
  53. TAMOXIFEN [Suspect]
     Active Substance: TAMOXIFEN
     Dosage: 1 DOSAGE FORM, CYCLE,1 DF, QD, COMBINATION WITH TRASTUZUMAB
     Route: 048
  54. TAMOXIFEN [Suspect]
     Active Substance: TAMOXIFEN
     Dosage: UNK
  55. CARBOPLATIN. [Suspect]
     Active Substance: CARBOPLATIN
     Dosage: 1 DOSAGE FORM, CYCLE,COMBINATION WITH TRASTUZUMAB AND GEMCITABINE
     Route: 065
     Dates: start: 2009
  56. EXEMESTANE. [Suspect]
     Active Substance: EXEMESTANE
     Dosage: 1 DF, CYCLE
     Dates: start: 2009
  57. METHOTREXATE. [Suspect]
     Active Substance: METHOTREXATE
     Indication: BREAST CANCER METASTATIC
     Dosage: 1 DOSAGE FORM, QD
     Dates: start: 2006
  58. DOCETAXEL. [Suspect]
     Active Substance: DOCETAXEL
     Dosage: 1 DOSAGE FORM, QD
     Dates: start: 2009
  59. FLUOROURACIL                       /00098802/ [Suspect]
     Active Substance: FLUOROURACIL
     Dosage: 1 DOSAGE FORM, CYCLE
     Route: 065
     Dates: start: 2006
  60. FLUOROURACIL                       /00098802/ [Suspect]
     Active Substance: FLUOROURACIL
     Dosage: UNK, CYCLE
     Dates: start: 2006
  61. TRASTUZUMAB. [Suspect]
     Active Substance: TRASTUZUMAB
     Dosage: 1 DF, QD COMBINATION WITH CAPECITABINE
     Dates: start: 2009
  62. TRASTUZUMAB. [Suspect]
     Active Substance: TRASTUZUMAB
     Dosage: 1 DOSAGE FORM, CYCLE( COMBINATION WITH FULVESTRANT)
     Route: 065
     Dates: start: 2009
  63. TRASTUZUMAB. [Suspect]
     Active Substance: TRASTUZUMAB
     Dosage: UNK, CYCLE(COMBINATION WITH EXEMESTANE AND EVEROLIMUS)
     Dates: start: 2009
  64. TRASTUZUMAB. [Suspect]
     Active Substance: TRASTUZUMAB
     Dosage: UNK, CYCLE(COMBINATION WITH ERIBULIN)
     Dates: start: 2009
  65. EPIRUBICIN [Suspect]
     Active Substance: EPIRUBICIN
     Indication: BREAST CANCER METASTATIC
     Dosage: 1 DOSAGE FORM, QD
     Dates: start: 2006
  66. EPIRUBICIN [Suspect]
     Active Substance: EPIRUBICIN
     Dosage: 1 DOSAGE FORM, CYCLE
     Route: 065
  67. CARBOPLATIN. [Suspect]
     Active Substance: CARBOPLATIN
     Indication: BREAST CANCER METASTATIC
     Dosage: 1 DF, QD, COMBINATION WITH TRASTUZUMAB AND GEMCITABINE
     Route: 065
     Dates: start: 2009
  68. GEMCITABINE. [Suspect]
     Active Substance: GEMCITABINE
     Dosage: 1 DOSAGE FORM, QD
     Dates: start: 2009
  69. EVEROLIMUS. [Suspect]
     Active Substance: EVEROLIMUS
     Indication: RECURRENT CANCER
     Dosage: 1 DOSAGE FORM, QD
     Route: 065
  70. EVEROLIMUS. [Suspect]
     Active Substance: EVEROLIMUS
     Dosage: UNK DOSAGE FORM, CYCLE(COMBINATION WITH TRASTZUMAB AND EXEMESTANE)
     Dates: start: 2009
  71. LAPATINIB                          /01756704/ [Suspect]
     Active Substance: LAPATINIB DITOSYLATE
     Dosage: UNK UNK, CYCLE(COMBINATION WITH CAPECITABINE)
     Dates: start: 2009
  72. DOXORUBICIN HYDROCHLORIDE LIPOSOME [Suspect]
     Active Substance: DOXORUBICIN HYDROCHLORIDE
     Indication: RECURRENT CANCER
     Dosage: UNK
  73. TRASTUZUMAB. [Suspect]
     Active Substance: TRASTUZUMAB
     Dosage: 1 DOSAGE FORM, CYCLE(COMBINATION WITH CAPECITABINE)
     Dates: start: 2009
  74. TRASTUZUMAB. [Suspect]
     Active Substance: TRASTUZUMAB
     Dosage: 1 DOSAGE FORM, CYCLE(COMBINATION WITH ERIBULIN)
     Dates: start: 2009
  75. TRASTUZUMAB. [Suspect]
     Active Substance: TRASTUZUMAB
     Dosage: 1 DOSAGE FORM, CYCLE(COMBINATION WITH LIPOSOMAL DOXORUBICIN HCL)
     Dates: start: 2009
  76. TRASTUZUMAB. [Suspect]
     Active Substance: TRASTUZUMAB
     Dosage: 1 DOSAGE FORM, CYCLE, COMBINATION WITH CAPECITABINE
     Route: 065
  77. EPIRUBICIN [Suspect]
     Active Substance: EPIRUBICIN
     Dosage: UNK
  78. CAPECITABINE. [Suspect]
     Active Substance: CAPECITABINE
     Indication: BREAST CANCER METASTATIC
     Dosage: 1 DOSAGE FORM, CYCLE,COMBINATION WITH TRASTUZUMAB
     Route: 065
     Dates: start: 2009
  79. CAPECITABINE. [Suspect]
     Active Substance: CAPECITABINE
     Dosage: 1 DF, QD COMBINATION WITH CAPECITABINE
     Dates: start: 2009
  80. CAPECITABINE. [Suspect]
     Active Substance: CAPECITABINE
     Dosage: 1 DOSAGE FORM, CYCLE,COMBINATION WITH TRASTUZUMAB
     Route: 065
  81. CAPECITABINE. [Suspect]
     Active Substance: CAPECITABINE
     Dosage: 1 DF, QD COMBINATION WITH TRASTUZUMAB
     Dates: start: 2009
  82. TAMOXIFEN [Suspect]
     Active Substance: TAMOXIFEN
     Indication: BREAST CANCER METASTATIC
     Dosage: 1 DF, QD, COMBINATION WITH TRASTUZUMAB
     Route: 048
     Dates: start: 2009
  83. PACLITAXEL. [Suspect]
     Active Substance: PACLITAXEL
     Dosage: UNK UNK, CYCLE
     Route: 065
     Dates: start: 2006
  84. CARBOPLATIN. [Suspect]
     Active Substance: CARBOPLATIN
     Dosage: UNK
  85. EXEMESTANE. [Suspect]
     Active Substance: EXEMESTANE
     Indication: RECURRENT CANCER
     Dosage: 1 DF, CYCLE, COMBINATION WITH TRASTUZUMAB AND EVEROLIMUS
     Dates: start: 2009
  86. EXEMESTANE. [Suspect]
     Active Substance: EXEMESTANE
     Dosage: 1 DF, CYCLE
  87. METHOTREXATE. [Suspect]
     Active Substance: METHOTREXATE
     Dosage: 1 DOSAGE FORM, CYCLE
     Dates: start: 2006
  88. DOCETAXEL. [Suspect]
     Active Substance: DOCETAXEL
     Indication: RECURRENT CANCER
     Dosage: UNK
     Route: 065
  89. VINORELBINE [Suspect]
     Active Substance: VINORELBINE TARTRATE
     Indication: RECURRENT CANCER
     Dosage: 1 DF, QD COMBINATION WITH TRASTUZUMAB
     Route: 065
  90. VINORELBINE [Suspect]
     Active Substance: VINORELBINE TARTRATE
     Dosage: 1 DF, QD COMBINATION WITH TRASTUZUMAB
     Dates: start: 2009
  91. TRASTUZUMAB. [Suspect]
     Active Substance: TRASTUZUMAB
     Dosage: 1 DF, QD COMBINATION WITH LIPOSOMAL DOXORUBICIN HCL
     Dates: start: 2009
  92. TRASTUZUMAB. [Suspect]
     Active Substance: TRASTUZUMAB
     Dosage: UNK, CYCLE(COMBINATION WITH FULVESTRANT)
     Route: 065
     Dates: start: 2009
  93. FULVESTRANT. [Suspect]
     Active Substance: FULVESTRANT
     Indication: RECURRENT CANCER
     Dosage: 1 DF, QD COMBINATION WITH TRASTUZUMAB
     Dates: start: 2009
  94. EPIRUBICIN [Suspect]
     Active Substance: EPIRUBICIN
     Indication: RECURRENT CANCER
     Dosage: 1 DOSAGE FORM, CYCLE
     Dates: start: 2006
  95. CARBOPLATIN. [Suspect]
     Active Substance: CARBOPLATIN
     Dosage: 1 DF, QD, COMBINATION WITH TRASTUZUMAB AND GEMCITABINE
     Route: 065
  96. EXEMESTANE. [Suspect]
     Active Substance: EXEMESTANE
     Dosage: UNK
  97. METHOTREXATE. [Suspect]
     Active Substance: METHOTREXATE
     Dosage: UNK UNK, CYCLE
     Dates: start: 2006
  98. GEMCITABINE. [Suspect]
     Active Substance: GEMCITABINE
     Dosage: 1 DF,CYCLE COMBINATION WITH TRASTUZUMAB AND CARBOPLATIN
     Route: 065
     Dates: start: 2009
  99. GEMCITABINE. [Suspect]
     Active Substance: GEMCITABINE
     Dosage: UNK UNK, CYCLE( COMBINATION WITH TRASTUZUMAB AND CARBOPLATIN)
     Route: 065
     Dates: start: 2009
  100. ERIBULIN [Suspect]
     Active Substance: ERIBULIN
     Dosage: UNK UNK, CYCLE(COMBINATION WITH TRASTUZUMAB)
     Route: 065
     Dates: start: 2009
  101. VINORELBINE [Suspect]
     Active Substance: VINORELBINE TARTRATE
     Dosage: 1 DOSAGE FORM, CYCLE(COMBINATION WITH TRASTUZUMAB)
     Route: 065
     Dates: start: 2009
  102. ENDOXAN                            /00021102/ [Suspect]
     Active Substance: CYCLOPHOSPHAMIDE
     Indication: BREAST CANCER METASTATIC
     Dosage: 1 DOSAGE FORM, QD
     Dates: start: 2006
  103. ENDOXAN                            /00021102/ [Suspect]
     Active Substance: CYCLOPHOSPHAMIDE
     Dosage: 1 DOSAGE FORM, CYCLE
     Dates: start: 2006
  104. LAPATINIB                          /01756704/ [Suspect]
     Active Substance: LAPATINIB DITOSYLATE
     Indication: METASTATIC MALIGNANT MELANOMA
     Dosage: 1 DOSAGE FORM, CYCLE (COMBINATION WITH CAPECITABINE)
     Dates: start: 2009
  105. LAPATINIB                          /01756704/ [Suspect]
     Active Substance: LAPATINIB DITOSYLATE
     Dosage: 1 DOSAGE FORM, CYCLE,COMBINATION WITH TRASTZUMAB AND EXEMESTANE
     Route: 065
  106. DOXORUBICIN HYDROCHLORIDE LIPOSOME [Suspect]
     Active Substance: DOXORUBICIN HYDROCHLORIDE
     Indication: BREAST CANCER METASTATIC
     Dosage: 1 DF, QD COMBINATION WITH TRASTUZUMAB
     Route: 065
     Dates: start: 2009
  107. CYCLOPHOSPHAMIDE. [Suspect]
     Active Substance: CYCLOPHOSPHAMIDE
     Indication: BREAST CANCER METASTATIC
     Dosage: UNK
     Route: 065
  108. TRASTUZUMAB. [Suspect]
     Active Substance: TRASTUZUMAB
     Dosage: 1 DF, QD COMBINATION WITH EXEMESTANE AND EVEROLIMUS
     Dates: start: 2009
  109. TRASTUZUMAB. [Suspect]
     Active Substance: TRASTUZUMAB
     Dosage: 1 DOSAGE FORM, CYCLE(COMBINATION WITH VINORELBINE)
     Dates: start: 2009
  110. TRASTUZUMAB. [Suspect]
     Active Substance: TRASTUZUMAB
     Dosage: 1 DOSAGE FORM, CYCLE(COMBINATION WITH GEMCITABINE AND CARBOPLATIN)
     Dates: start: 2009
  111. TRASTUZUMAB. [Suspect]
     Active Substance: TRASTUZUMAB
     Dosage: UNK, CYCLE(COMBINATION WITH CAPECITABINE)
     Dates: start: 2009
  112. FULVESTRANT. [Suspect]
     Active Substance: FULVESTRANT
     Dosage: 1 DOSAGE FORM, CYCLE(COMBINATION WITH TRASTUZUMAB)
     Route: 030
     Dates: start: 2009
  113. CAPECITABINE. [Suspect]
     Active Substance: CAPECITABINE
     Dosage: 1 DOSAGE FORM, QD(COMBINATION WITH LAPATINIB)
     Route: 065
     Dates: start: 2009
  114. TAMOXIFEN [Suspect]
     Active Substance: TAMOXIFEN
     Indication: RECURRENT CANCER
     Dosage: 1 DOSAGE FORM, CYCLE
     Route: 048
     Dates: start: 2009
  115. CARBOPLATIN. [Suspect]
     Active Substance: CARBOPLATIN
     Dosage: 1 DF, QD COMBINATION WITH TRASTUZUMAB AND GEMCITABINE
     Route: 065
     Dates: start: 2009
  116. EXEMESTANE. [Suspect]
     Active Substance: EXEMESTANE
     Dosage: UNK, CYCLE,(COMBINATION WITH TRASTZUMAB AND EVEROLIMUS)
     Route: 065
     Dates: start: 2009
  117. METHOTREXATE. [Suspect]
     Active Substance: METHOTREXATE
     Dosage: 1 DOSAGE FORM, CYCLE
     Route: 065
  118. EVEROLIMUS. [Suspect]
     Active Substance: EVEROLIMUS
     Indication: BREAST CANCER
     Dosage: UNK
  119. EVEROLIMUS. [Suspect]
     Active Substance: EVEROLIMUS
     Dosage: 1 DOSAGE FORM, CYCLE(COMBINATION WITH TRASTZUMAB AND EXEMESTANE)
     Dates: start: 2009
  120. VINORELBINE [Suspect]
     Active Substance: VINORELBINE TARTRATE
     Dosage: UNK
  121. VINORELBINE [Suspect]
     Active Substance: VINORELBINE TARTRATE
     Dosage: 1 DOSAGE FORM, QD
     Dates: start: 2009
  122. ENDOXAN                            /00021102/ [Suspect]
     Active Substance: CYCLOPHOSPHAMIDE
     Dosage: 1 DOSAGE FORM, CYCLE
     Route: 065
  123. LAPATINIB                          /01756704/ [Suspect]
     Active Substance: LAPATINIB DITOSYLATE
     Indication: BREAST CANCER METASTATIC
     Dosage: 1 DF, QD COMBINATION WITH CAPECITABINE
     Dates: start: 2009
  124. DOXORUBICIN HYDROCHLORIDE LIPOSOME [Suspect]
     Active Substance: DOXORUBICIN HYDROCHLORIDE
     Dosage: 1 DOSAGE FORM, CYCLE(COMBINATION WITH TRASTUZUMAB)
     Dates: start: 2009
  125. DOXORUBICIN HYDROCHLORIDE LIPOSOME [Suspect]
     Active Substance: DOXORUBICIN HYDROCHLORIDE
     Dosage: UNK UNK, CYCLE( COMBINATION WITH TRASTUZUMAB)
     Dates: start: 2009

REACTIONS (8)
  - Metastases to lung [Unknown]
  - Skin mass [Unknown]
  - Metastases to skin [Unknown]
  - Malignant neoplasm progression [Unknown]
  - Recurrent cancer [Unknown]
  - Hormone receptor positive breast cancer [Unknown]
  - Metastases to bone [Unknown]
  - Metastases to lymph nodes [Unknown]

NARRATIVE: CASE EVENT DATE: 2009
